FAERS Safety Report 15757320 (Version 1)
Quarter: 2018Q4

REPORT INFORMATION
  Report Type: Spontaneous
  Country: JP (occurrence: JP)
  Receive Date: 20181224
  Receipt Date: 20181224
  Transmission Date: 20190205
  Serious: Yes (Other)
  Sender: FDA-Public Use
  Company Number: PHHY2018JP041638

PATIENT
  Age: 47 Year
  Sex: Male
  Weight: 83 kg

DRUGS (5)
  1. NOVASTAN [Suspect]
     Active Substance: ARGATROBAN
     Dosage: 3 MG, QD
     Route: 040
  2. HEPARIN [Concomitant]
     Active Substance: HEPARIN SODIUM
     Indication: PULMONARY EMBOLISM
     Dosage: UNK
     Route: 065
  3. UROKINASE [Concomitant]
     Active Substance: UROKINASE
     Indication: PULMONARY EMBOLISM
     Dosage: UNK
     Route: 065
  4. NOVASTAN [Suspect]
     Active Substance: ARGATROBAN
     Indication: HEPARIN-INDUCED THROMBOCYTOPENIA
     Dosage: 0.25 MCG/KG/MIN
     Route: 041
  5. NOVASTAN [Suspect]
     Active Substance: ARGATROBAN
     Dosage: 5 MG, QD (5 MCG/KG/MIN)
     Route: 040

REACTIONS (2)
  - Haemorrhage [Recovering/Resolving]
  - Coagulopathy [Recovering/Resolving]
